FAERS Safety Report 6832297-2 (Version None)
Quarter: 2010Q3

REPORT INFORMATION
  Report Type: 
  Country: None (occurrence: None)
  Receive Date: 20100712
  Receipt Date: 20100708
  Transmission Date: 20110219
  Serious: Yes (Hospitalization)
  Sender: FDA-Public Use
  Company Number: US-GENZYME-THYM-1001612

PATIENT
  Age: 53 Year
  Sex: Male

DRUGS (3)
  1. THYMOGLOBULIN [Suspect]
     Indication: LIVER TRANSPLANT REJECTION
     Dosage: 1.5 MG/KG, QD
     Route: 042
  2. METHYLPREDNISOLONE [Concomitant]
     Indication: LIVER TRANSPLANT REJECTION
     Dosage: 500 MG, QD
  3. METHYLPREDNISOLONE [Concomitant]
     Dosage: 200 MG, QD

REACTIONS (4)
  - HEPATIC NEOPLASM MALIGNANT [None]
  - HEPATITIS C [None]
  - TRICHOPHYTIC GRANULOMA [None]
  - WOUND DEHISCENCE [None]
